FAERS Safety Report 13163274 (Version 1)
Quarter: 2017Q1

REPORT INFORMATION
  Report Type: Spontaneous
  Country: US (occurrence: US)
  Receive Date: 20170129
  Receipt Date: 20170129
  Transmission Date: 20170428
  Serious: Yes (Other)
  Sender: FDA-Public Use
  Company Number: None

PATIENT
  Age: 61 Year
  Sex: Female
  Weight: 97.2 kg

DRUGS (28)
  1. EFFEXOR [Concomitant]
     Active Substance: VENLAFAXINE HYDROCHLORIDE
  2. VITAMIN B COMPLEX [Concomitant]
     Active Substance: CYANOCOBALAMIN\DEXPANTHENOL\NIACINAMIDE\PYRIDOXINE HYDROCHLORIDE\RIBOFLAVIN 5^-PHOSPHATE SODIUM\THIAMINE HYDROCHLORIDE\VITAMIN B COMPLEX
  3. FOLIC ACID 800MCG [Concomitant]
  4. AIRBORNE [Concomitant]
     Active Substance: HERBALS\MINERALS\VITAMINS
  5. LIPOIC ACID 200MG [Concomitant]
  6. PIOGLITAZONE TABS 15MG [Concomitant]
  7. QUICK-DISSOLVE TABS [Concomitant]
  8. HAIR [Concomitant]
  9. D3 5000IU [Concomitant]
  10. CHROMIUM 1000MCG [Concomitant]
  11. CINNAMON 1000MG [Concomitant]
  12. TURMERIC CURCUMIN 500MG [Concomitant]
  13. PIOGLITAZONE. [Suspect]
     Active Substance: PIOGLITAZONE
     Indication: BLOOD GLUCOSE INCREASED
     Dosage: ?          QUANTITY:1 TABLET(S);?
     Route: 048
     Dates: start: 20160926
  14. QUNOL COQ10 100MG [Concomitant]
  15. LUTEIN 20MG [Concomitant]
  16. CALCIUM 500MG [Concomitant]
  17. SKIN +NAILS [Concomitant]
  18. B12 5000MCG [Concomitant]
  19. MAGNESIUM WITH ZINC [Concomitant]
  20. AZO [Concomitant]
     Active Substance: PHENAZOPYRIDINE HYDROCHLORIDE
  21. GLYBURIDE/MET 2.5/500 TABS [Concomitant]
  22. LOSARTAN TABS 100MG [Concomitant]
  23. SIMVASTATIN TABS 40MG [Concomitant]
  24. VISION MULTI 50+ SOFTGEL [Concomitant]
  25. MEGARED ADVANCED 900MG [Concomitant]
  26. JARDIANCE TABS 25M [Concomitant]
  27. L-THYOXINE TAB 50MCG [Concomitant]
  28. CLONIDINE HCL TABS 0.1MG [Concomitant]

REACTIONS (4)
  - Eye pruritus [None]
  - Cough [None]
  - Rash [None]
  - Dry throat [None]

NARRATIVE: CASE EVENT DATE: 20160928
